FAERS Safety Report 9882330 (Version 2)
Quarter: 2014Q1

REPORT INFORMATION
  Report Type: Spontaneous
  Country: US (occurrence: US)
  Receive Date: 20140207
  Receipt Date: 20140221
  Transmission Date: 20141002
  Serious: Yes (Hospitalization, Disabling)
  Sender: FDA-Public Use
  Company Number: US-VIIV HEALTHCARE LIMITED-A1059279A

PATIENT
  Sex: Male

DRUGS (5)
  1. TIVICAY [Suspect]
     Indication: HIV INFECTION
     Dosage: 50MG PER DAY
     Route: 048
  2. TRUVADA [Concomitant]
  3. REYATAZ [Concomitant]
  4. RITONAVIR [Concomitant]
  5. ISENTRESS [Concomitant]

REACTIONS (17)
  - Disseminated intravascular coagulation [Recovered/Resolved]
  - International normalised ratio increased [Recovered/Resolved]
  - Haemoglobin decreased [Recovering/Resolving]
  - Haematocrit decreased [Recovered/Resolved]
  - Platelet count decreased [Recovering/Resolving]
  - Blood fibrinogen decreased [Recovering/Resolving]
  - Fibrin D dimer increased [Recovering/Resolving]
  - Jaundice [Recovering/Resolving]
  - Aspartate aminotransferase increased [Recovered/Resolved]
  - Blood bilirubin increased [Recovering/Resolving]
  - Alanine aminotransferase increased [Recovered/Resolved]
  - Blood alkaline phosphatase increased [Recovering/Resolving]
  - Faeces discoloured [Recovering/Resolving]
  - Hepatic function abnormal [Recovering/Resolving]
  - Transfusion [Recovering/Resolving]
  - Ascites [Recovering/Resolving]
  - Hyperbilirubinaemia [Recovering/Resolving]
